FAERS Safety Report 13489302 (Version 1)
Quarter: 2017Q2

REPORT INFORMATION
  Report Type: Spontaneous
  Country: US (occurrence: US)
  Receive Date: 20170427
  Receipt Date: 20170427
  Transmission Date: 20170830
  Serious: Yes (Hospitalization)
  Sender: FDA-Public Use
  Company Number: US-PFIZER INC-2017179328

PATIENT
  Age: 14 Year
  Sex: Male

DRUGS (1)
  1. GENOTROPIN MQ [Suspect]
     Active Substance: SOMATROPIN
     Dosage: 1.4 (NO UNIT PROVIDED), 1X/DAY (7 DAYS/WEEK)
     Dates: start: 201404

REACTIONS (4)
  - Renal failure [Unknown]
  - Dehydration [Unknown]
  - Gastroenteritis [Unknown]
  - Diarrhoea [Unknown]
